FAERS Safety Report 9259902 (Version 3)
Quarter: 2014Q2

REPORT INFORMATION
  Report Type: Spontaneous
  Country: US (occurrence: US)
  Receive Date: 20130429
  Receipt Date: 20140528
  Transmission Date: 20141212
  Serious: Yes (Hospitalization, Other)
  Sender: FDA-Public Use
  Company Number: US-ASTRAZENECA-2013SE27534

PATIENT
  Age: 64 Year
  Sex: Female
  Weight: 74.8 kg

DRUGS (44)
  1. NEXIUM [Suspect]
     Indication: GASTROOESOPHAGEAL REFLUX DISEASE
     Route: 048
  2. NEXIUM [Suspect]
     Indication: GASTROOESOPHAGEAL REFLUX DISEASE
     Route: 048
  3. NEXIUM [Suspect]
     Indication: GASTROOESOPHAGEAL REFLUX DISEASE
     Route: 048
     Dates: start: 2005, end: 2011
  4. NEXIUM [Suspect]
     Indication: GASTROOESOPHAGEAL REFLUX DISEASE
     Route: 048
     Dates: start: 2005
  5. NEXIUM [Suspect]
     Indication: GASTROOESOPHAGEAL REFLUX DISEASE
     Route: 048
     Dates: start: 20060126
  6. NEXIUM [Suspect]
     Indication: GASTROOESOPHAGEAL REFLUX DISEASE
     Route: 048
     Dates: start: 20120724
  7. PEPTO BISMOL [Concomitant]
  8. ALKA SELTZER [Concomitant]
  9. TUMS [Concomitant]
     Indication: GASTROOESOPHAGEAL REFLUX DISEASE
     Dosage: OTC AS NEEDED
     Dates: start: 2004
  10. VENLAFAXINE [Concomitant]
  11. MIRTTAZAPINE [Concomitant]
  12. TRIAMITERENE [Concomitant]
  13. HYDROCODONE [Concomitant]
  14. DIAZEPAM [Concomitant]
  15. TOPIROL [Concomitant]
  16. LEVOTHYROXINE [Concomitant]
  17. POTASSIUM [Concomitant]
  18. RANITIDINE [Concomitant]
  19. FINACEA [Concomitant]
  20. OXYCODONE [Concomitant]
  21. FLUCONAZOLE [Concomitant]
  22. FORTEO [Concomitant]
  23. MINOCYCLINE [Concomitant]
  24. NYSTATIN [Concomitant]
  25. ABILIFY [Concomitant]
  26. AMLODIPINE [Concomitant]
  27. METROGEL [Concomitant]
  28. DOCUSATE [Concomitant]
  29. COZAAR [Concomitant]
  30. FENTANYL [Concomitant]
  31. BONIVA [Concomitant]
  32. FOSAMAX [Concomitant]
  33. METOPROLOL SUCCINATE [Concomitant]
     Dates: start: 20100723
  34. VENLAFAXINE HCL [Concomitant]
     Dates: start: 20101203
  35. PREMARIN [Concomitant]
  36. PENTAZOCINE-NALOXONE [Concomitant]
  37. BUPROPION HCL [Concomitant]
  38. LISINOPRIL [Concomitant]
  39. ACTONEL [Concomitant]
  40. NABUMETONE [Concomitant]
  41. CITALOPRAM [Concomitant]
  42. EFFEXOR XR [Concomitant]
  43. SULFAMETHOXAZOLE [Concomitant]
  44. CYMBALTA [Concomitant]

REACTIONS (17)
  - Back disorder [Unknown]
  - Gallbladder disorder [Unknown]
  - Osteoporosis [Unknown]
  - Bone disorder [Unknown]
  - Multiple fractures [Unknown]
  - Spinal compression fracture [Unknown]
  - Ankle fracture [Unknown]
  - Spinal fracture [Unknown]
  - Foot deformity [Unknown]
  - Fall [Unknown]
  - Anxiety [Unknown]
  - Atrophy [Unknown]
  - Calcium deficiency [Unknown]
  - Malabsorption [Unknown]
  - Hypothyroidism [Unknown]
  - Back injury [Unknown]
  - Depression [Unknown]
